FAERS Safety Report 14164624 (Version 2)
Quarter: 2017Q4

REPORT INFORMATION
  Report Type: Spontaneous
  Country: US (occurrence: US)
  Receive Date: 20171107
  Receipt Date: 20171129
  Transmission Date: 20180321
  Serious: No
  Sender: FDA-Public Use
  Company Number: US-PFIZER INC-2017473552

PATIENT
  Sex: Female
  Weight: 90.26 kg

DRUGS (2)
  1. LYRICA [Suspect]
     Active Substance: PREGABALIN
     Indication: NERVE INJURY
     Dosage: 75 MG, 2X/DAY (EVERY TWELVE HOURS)
  2. LYRICA [Suspect]
     Active Substance: PREGABALIN
     Indication: DIABETIC NEUROPATHY

REACTIONS (8)
  - Peripheral swelling [Not Recovered/Not Resolved]
  - Body height decreased [Unknown]
  - Mastocytosis [Unknown]
  - Condition aggravated [Unknown]
  - Acarodermatitis [Unknown]
  - Weight increased [Unknown]
  - Spinal osteoarthritis [Unknown]
  - Pain [Unknown]
